FAERS Safety Report 23231810 (Version 1)
Quarter: 2023Q4

REPORT INFORMATION
  Report Type: Spontaneous
  Country: US (occurrence: None)
  Receive Date: 20231127
  Receipt Date: 20231127
  Transmission Date: 20240110
  Serious: No
  Sender: FDA-Public Use
  Company Number: None

PATIENT
  Sex: Female

DRUGS (1)
  1. HUMIRA [Suspect]
     Active Substance: ADALIMUMAB
     Indication: Rheumatoid arthritis
     Dosage: FREQUENCY : EVERY OTHER WEEK;?
     Route: 058
     Dates: start: 202303

REACTIONS (7)
  - Joint swelling [None]
  - Asthma [None]
  - Eye swelling [None]
  - Ocular hyperaemia [None]
  - Otorrhoea [None]
  - Drug ineffective [None]
  - Therapy interrupted [None]
